FAERS Safety Report 23057626 (Version 1)
Quarter: 2023Q4

REPORT INFORMATION
  Report Type: Spontaneous
  Country: US (occurrence: US)
  Receive Date: 20231012
  Receipt Date: 20231012
  Transmission Date: 20240110
  Serious: Yes (Other)
  Sender: FDA-Public Use
  Company Number: US-SA-2023SA126568

PATIENT
  Age: 61 Year
  Sex: Female
  Weight: 113.3 kg

DRUGS (27)
  1. BISACODYL [Suspect]
     Active Substance: BISACODYL
     Indication: Constipation prophylaxis
     Dosage: DOSE DESCRIPTION : 5 MG, QD
     Route: 065
     Dates: start: 202209
  2. OXALIPLATIN [Suspect]
     Active Substance: OXALIPLATIN
     Indication: Pancreatic carcinoma metastatic
     Dosage: DOSE DESCRIPTION : 116 MG; DAY 1 AND DAY 15 OF EACH 28 DAY CYCLE
     Route: 042
     Dates: start: 20221031
  3. OXALIPLATIN [Suspect]
     Active Substance: OXALIPLATIN
     Dosage: DOSE DESCRIPTION : UNK
     Route: 065
     Dates: start: 20221102
  4. BUDIGALIMAB [Suspect]
     Active Substance: BUDIGALIMAB
     Indication: Pancreatic carcinoma metastatic
     Dosage: DOSE DESCRIPTION : 500 MG; 3 OF EACH 28 DAY CYCLE, EVERY 4 WEEKS
     Route: 042
     Dates: start: 202211
  5. FLUOROURACIL [Suspect]
     Active Substance: FLUOROURACIL
     Indication: Pancreatic carcinoma metastatic
     Dosage: DOSE DESCRIPTION : 4454.4 MG; DAY 1, 3, 15 AND 17 OF EACH 28 DAY CYCLE
     Route: 042
     Dates: start: 20221031
  6. LEUCOVORIN [Suspect]
     Active Substance: LEUCOVORIN\LEUCOVORIN CALCIUM
     Indication: Pancreatic carcinoma metastatic
     Dosage: DOSE DESCRIPTION : 928 MG; 1 AND DAY 15 OF EACH 28 DAY CYCLE
     Route: 042
     Dates: start: 20221031
  7. IRINOTECAN [Suspect]
     Active Substance: IRINOTECAN
     Indication: Pancreatic carcinoma metastatic
     Dosage: DOSE DESCRIPTION : 278.4 MG; DAY 1 AND DAY 15 OF EACH 28 DAY CYCLE
     Route: 042
     Dates: start: 20221031
  8. EMLA [Concomitant]
     Active Substance: LIDOCAINE\PRILOCAINE
     Indication: Pain management
     Dosage: DOSE DESCRIPTION : 2.5 %, PRN
     Route: 065
     Dates: start: 20221018
  9. IBUPROFEN [Concomitant]
     Active Substance: IBUPROFEN
     Indication: Back pain
     Dosage: DOSE DESCRIPTION : 200 MG, PRN
     Route: 065
     Dates: start: 20221002
  10. INSULIN GLARGINE [Concomitant]
     Active Substance: INSULIN GLARGINE
     Indication: Diabetes mellitus
     Dosage: DOSE DESCRIPTION : 32 IU, QD; EVERY EVENING
     Route: 065
     Dates: start: 202209
  11. SERTRALINE HYDROCHLORIDE [Concomitant]
     Active Substance: SERTRALINE HYDROCHLORIDE
     Indication: Antidepressant therapy
     Dosage: DOSE DESCRIPTION : 50 MG, QD
     Route: 065
     Dates: start: 20221003
  12. PANTOPRAZOLE SODIUM [Concomitant]
     Active Substance: PANTOPRAZOLE SODIUM
     Indication: Dyspepsia
     Dosage: DOSE DESCRIPTION : 40 MG, 2/DAYS
     Route: 065
     Dates: start: 202209
  13. MELATONIN [Concomitant]
     Active Substance: MELATONIN
     Indication: Sleep disorder therapy
     Dosage: DOSE DESCRIPTION : 3 MG, QD
     Route: 065
     Dates: start: 202209
  14. INSULIN PORK\INSULIN PURIFIED PORK [Concomitant]
     Active Substance: INSULIN PORK\INSULIN PURIFIED PORK
     Indication: Diabetes mellitus
     Dosage: UNIT DOSE : 100?DAILY DOSE UNIT : IU/ML?DOSE DESCRIPTION : 100 IU/ML, PRN
     Route: 065
     Dates: start: 202209
  15. INSULIN LISPRO [Concomitant]
     Active Substance: INSULIN LISPRO
     Indication: Diabetes mellitus
     Dosage: DOSE DESCRIPTION : 9 IU;3/DAYS
     Route: 065
     Dates: start: 202209
  16. TUCKS [PARAFFIN, LIQUID;PRAMOCAINE HYDROCHLORIDE;ZINC OXIDE] [Concomitant]
     Indication: Haemorrhoids
     Dosage: DOSE DESCRIPTION : UNK UNK, PRN; MEDICATED COOLING PADS, 1 APPLICATION
     Route: 065
     Dates: start: 202210
  17. PROCHLORPERAZINE MALEATE [Concomitant]
     Active Substance: PROCHLORPERAZINE MALEATE
     Indication: Prophylaxis of nausea and vomiting
     Dosage: DOSE DESCRIPTION : 10 MG, Q6H
     Route: 065
     Dates: start: 202210
  18. ONDANSETRON HYDROCHLORIDE [Concomitant]
     Active Substance: ONDANSETRON HYDROCHLORIDE
     Indication: Prophylaxis of nausea and vomiting
     Dosage: DOSE DESCRIPTION : 8 MG, PRN
     Route: 065
     Dates: start: 202210
  19. LOPERAMIDE HYDROCHLORIDE [Concomitant]
     Active Substance: LOPERAMIDE HYDROCHLORIDE
     Indication: Diarrhoea
     Dosage: DOSE DESCRIPTION : 2 MG, PRN
     Route: 065
     Dates: start: 202210
  20. ZOLPIDEM TARTRATE [Concomitant]
     Active Substance: ZOLPIDEM TARTRATE
     Indication: Insomnia
     Dosage: DOSE DESCRIPTION : 5 MG, QD
     Route: 065
     Dates: start: 20221128
  21. APIXABAN [Concomitant]
     Active Substance: APIXABAN
     Indication: Embolism
     Dosage: DOSE DESCRIPTION : 10 MG;2/DAYS
     Route: 065
     Dates: start: 20230106
  22. ACETAMINOPHEN [Concomitant]
     Active Substance: ACETAMINOPHEN
     Indication: Pain
     Dosage: DOSE DESCRIPTION : 650 MG, PRN
     Route: 065
     Dates: start: 20230220
  23. GABAPENTIN [Concomitant]
     Active Substance: GABAPENTIN
     Indication: Pain
     Dosage: DOSE DESCRIPTION : 300 MG, QD
     Route: 065
     Dates: start: 20230118
  24. ROXICODONE [Concomitant]
     Active Substance: OXYCODONE HYDROCHLORIDE
     Indication: Pain
     Dosage: DOSE DESCRIPTION : 5 MG;2/DAYS
     Route: 065
     Dates: start: 20230118
  25. OXYCODONE [Concomitant]
     Active Substance: OXYCODONE
     Indication: Pain
     Dosage: DOSE DESCRIPTION : 5 MG;2/DAYS
     Route: 065
     Dates: start: 20230325
  26. ATROPINE [Concomitant]
     Active Substance: ATROPINE
     Indication: Nausea
     Route: 065
     Dates: start: 202210
  27. ATROPINE [Concomitant]
     Active Substance: ATROPINE
     Indication: Vomiting

REACTIONS (3)
  - Back pain [Recovered/Resolved]
  - Fatigue [Unknown]
  - Oedema peripheral [Unknown]

NARRATIVE: CASE EVENT DATE: 20221101
